FAERS Safety Report 9654010 (Version 1)
Quarter: 2013Q4

REPORT INFORMATION
  Report Type: Spontaneous
  Country: US (occurrence: None)
  Receive Date: 20131028
  Receipt Date: 20131028
  Transmission Date: 20140711
  Serious: Yes (Death)
  Sender: FDA-Public Use
  Company Number: 2013P1020214

PATIENT
  Age: 78 Year
  Sex: Female

DRUGS (38)
  1. MYORISAN [Suspect]
     Indication: KERATOSIS FOLLICULAR
     Route: 048
     Dates: start: 20130911
  2. MYORISAN [Suspect]
     Indication: KERATOSIS FOLLICULAR
     Dates: start: 20130418
  3. MIRTAZAPINE [Concomitant]
  4. DOXEPIN HCL [Concomitant]
  5. ATROVENT [Concomitant]
  6. NYSTATIN [Concomitant]
  7. CALCIUM 500 + D [Concomitant]
  8. FISH OIL [Concomitant]
  9. FLORAJEN ACIDOPHILUS [Concomitant]
  10. ZINC GLUCONATE [Concomitant]
  11. FEXOFENADINE HCL [Concomitant]
  12. BENZONATATE [Concomitant]
  13. ALDACTONE [Concomitant]
  14. FLUOXETINE HCL [Concomitant]
  15. POTASSIUM CHLORIDE ER [Concomitant]
  16. DILTIAZEM HCL ER [Concomitant]
  17. AMBIEN [Concomitant]
  18. DESONIDE 0.05% LOTION [Concomitant]
  19. XARELTO [Concomitant]
  20. PANTOPRAZOLE SODIUM [Concomitant]
  21. XANAX [Concomitant]
  22. HIBICLENS HAND PUMP 32OZ [Concomitant]
  23. LASIX [Concomitant]
  24. TRIAMCINOLONE ACETONIDE 0.1% CREAM [Concomitant]
  25. SENOKOT [Concomitant]
  26. MIRALAX [Concomitant]
  27. SPIRONOLACTONE [Concomitant]
  28. MUCINEX [Concomitant]
  29. DULCOLAX [Concomitant]
  30. MULTIVITAMINS (WITH IRON) [Concomitant]
  31. LETAIRIS [Concomitant]
  32. MAGNESIUM OXIDE [Concomitant]
  33. METOLAZONE [Concomitant]
  34. BENADRYL ALLERGY [Concomitant]
  35. ANUSOL HC [Concomitant]
  36. OXYGEN [Concomitant]
  37. GENERLAC [Concomitant]
  38. BISACODYL [Concomitant]

REACTIONS (5)
  - Apnoea [None]
  - Cardiac arrest [None]
  - Ventricular fibrillation [None]
  - Pulseless electrical activity [None]
  - Coronary artery disease [None]
